FAERS Safety Report 4847649-X (Version None)
Quarter: 2005Q4

REPORT INFORMATION
  Report Type: 
  Country: None (occurrence: None)
  Receive Date: 20051205
  Receipt Date: 20051123
  Transmission Date: 20060501
  Serious: Yes (Hospitalization, Other)
  Sender: FDA-Public Use
  Company Number: 2005119101

PATIENT
  Age: 85 Year
  Sex: Female
  Weight: 72 kg

DRUGS (5)
  1. ZOLOFT [Suspect]
     Indication: ILL-DEFINED DISORDER
     Dosage: 20 MG (1 D), ORAL
     Route: 048
     Dates: end: 20050622
  2. ARICEPT [Suspect]
     Indication: DEMENTIA ALZHEIMER'S TYPE
     Dosage: 10 MG (1 D), ORAL
     Route: 048
  3. EQUANIL [Suspect]
     Indication: ILL-DEFINED DISORDER
     Dosage: 200 MG (1 D), ORAL
     Route: 048
     Dates: end: 20050622
  4. RISPERDAL [Suspect]
     Indication: ILL-DEFINED DISORDER
     Dosage: 1 MG (1 D), ORAL
     Route: 048
     Dates: end: 20050622
  5. PAROXETINE HYDROCHLORIDE [Concomitant]

REACTIONS (5)
  - ATRIOVENTRICULAR BLOCK FIRST DEGREE [None]
  - CEREBRAL ATROPHY [None]
  - DYSPHAGIA [None]
  - FACIAL PALSY [None]
  - ISCHAEMIC STROKE [None]
